FAERS Safety Report 9159872 (Version 1)
Quarter: 2013Q1

REPORT INFORMATION
  Report Type: Spontaneous
  Country: US (occurrence: US)
  Receive Date: 20130313
  Receipt Date: 20130313
  Transmission Date: 20140127
  Serious: Yes (Hospitalization, Other)
  Sender: FDA-Public Use
  Company Number: US-PFIZER INC-2013081623

PATIENT
  Age: 81 Year
  Sex: Female

DRUGS (5)
  1. SUTENT [Suspect]
     Indication: RENAL CANCER
     Dosage: 25 MG, UNK
     Dates: start: 20130219
  2. FUROSEMIDE [Concomitant]
     Dosage: UNK
  3. HYDROCODONE/ACETAMINOPHEN [Concomitant]
     Dosage: UNK
  4. POTASSIUM CHLORIDE [Concomitant]
     Dosage: UNK
  5. ZOMETA [Concomitant]
     Dosage: UNK

REACTIONS (2)
  - Fall [Unknown]
  - Osteomyelitis [Unknown]
